FAERS Safety Report 8504026-8 (Version None)
Quarter: 2012Q3

REPORT INFORMATION
  Report Type: 
  Country: None (occurrence: None)
  Receive Date: 20120711
  Receipt Date: 20120702
  Transmission Date: 20120928
  Serious: Yes (Death, Hospitalization, Other)
  Sender: FDA-Public Use
  Company Number: AR-BRISTOL-MYERS SQUIBB COMPANY-16736530

PATIENT
  Age: 69 Year
  Sex: Female

DRUGS (1)
  1. YERVOY [Suspect]

REACTIONS (6)
  - METASTASIS [None]
  - BLOOD PRESSURE INCREASED [None]
  - DEATH [None]
  - PYREXIA [None]
  - ABDOMINAL PAIN LOWER [None]
  - INFLAMMATION [None]
